FAERS Safety Report 4536605-7 (Version None)
Quarter: 2004Q4

REPORT INFORMATION
  Report Type: 
  Country: None (occurrence: None)
  Receive Date: 20041220
  Receipt Date: 20041209
  Transmission Date: 20050328
  Serious: Yes (Other)
  Sender: FDA-Public Use
  Company Number: 2004106412

PATIENT
  Age: 43 Year
  Sex: Male

DRUGS (4)
  1. ZITHROMAX [Suspect]
     Indication: SINUSITIS
  2. INSULIN GLARGINE (INSULIN GLARGINE) [Suspect]
     Indication: DIABETES MELLITUS NON-INSULIN-DEPENDENT
     Dosage: 100 UNITS (100 UNITS, 1 IN 1 D), SUBCUTANEOUS
     Route: 058
  3. ANTIHISTAMINES (ANTIHISTAMINES) [Concomitant]
  4. OTHER RESPIRATORY SYSTEM PROSDUCTS (OTHER RESPIRATORY SISTEM PRODUCTS) [Concomitant]

REACTIONS (1)
  - FACIAL PALSY [None]
